FAERS Safety Report 18486962 (Version 1)
Quarter: 2020Q4

REPORT INFORMATION
  Report Type: Spontaneous
  Country: US (occurrence: US)
  Receive Date: 20201110
  Receipt Date: 20201110
  Transmission Date: 20210114
  Serious: Yes (Disabling, Other)
  Sender: FDA-Public Use
  Company Number: US-PURDUE-USA-2020-0175765

PATIENT
  Sex: Female

DRUGS (9)
  1. DILAUDID [Suspect]
     Active Substance: HYDROMORPHONE HYDROCHLORIDE
     Indication: PAIN
     Dosage: UNK
     Route: 048
     Dates: start: 199908, end: 201708
  2. TRAMADOL. [Suspect]
     Active Substance: TRAMADOL
     Indication: PAIN
     Dosage: UNK
     Route: 048
     Dates: start: 199908, end: 201708
  3. HYDROMORPHONE TABLETS [Suspect]
     Active Substance: HYDROMORPHONE
     Indication: PAIN
     Dosage: UNK
     Route: 048
     Dates: start: 199908, end: 201708
  4. HYDROCODONE BITARTRATE AND ACETAMINOPHEN [Suspect]
     Active Substance: ACETAMINOPHEN\HYDROCODONE BITARTRATE
     Indication: PAIN
     Dosage: UNK
     Route: 048
     Dates: start: 199908, end: 201708
  5. MORPHINE SULFATE EXTENDED-RELEASE TABLETS (RHODES 74-769, 74-862) [Suspect]
     Active Substance: MORPHINE SULFATE
     Indication: PAIN
     Dosage: UNK
     Route: 048
     Dates: start: 199908, end: 201708
  6. OXYCONTIN [Suspect]
     Active Substance: OXYCODONE HYDROCHLORIDE
     Indication: PAIN
     Dosage: UNK
     Route: 048
     Dates: start: 199908, end: 201708
  7. BUTRANS [Suspect]
     Active Substance: BUPRENORPHINE
     Indication: PAIN
     Dosage: UNK
     Route: 062
     Dates: start: 199908, end: 201708
  8. OXYCODONE/ ACETAMINOPHEN TABLETS [Suspect]
     Active Substance: ACETAMINOPHEN\OXYCODONE HYDROCHLORIDE
     Indication: PAIN
     Dosage: UNK
     Route: 048
     Dates: start: 199908, end: 201708
  9. BUPRENORPHINE TRANSDERMAL PATCH (SIMILAR TO NDA 21-306) [Suspect]
     Active Substance: BUPRENORPHINE
     Indication: PAIN
     Dosage: UNK
     Route: 062
     Dates: start: 199908, end: 201708

REACTIONS (24)
  - Suicidal ideation [Unknown]
  - Nervous system disorder [Unknown]
  - Pain [Unknown]
  - Learning disability [Unknown]
  - Bipolar disorder [Unknown]
  - Vomiting [Unknown]
  - Depression [Unknown]
  - Mental disability [Not Recovered/Not Resolved]
  - Anxiety [Unknown]
  - Insomnia [Unknown]
  - Drug dependence [Recovered/Resolved]
  - Weight decreased [Unknown]
  - Physical disability [Not Recovered/Not Resolved]
  - Restless legs syndrome [Unknown]
  - Seizure [Unknown]
  - Nausea [Unknown]
  - Amnesia [Unknown]
  - Migraine [Unknown]
  - Osteoporosis [Unknown]
  - Brain injury [Unknown]
  - Diarrhoea [Unknown]
  - Eating disorder [Unknown]
  - Tremor [Unknown]
  - Psychomotor skills impaired [Unknown]
